FAERS Safety Report 11174613 (Version 1)
Quarter: 2015Q2

REPORT INFORMATION
  Report Type: Spontaneous
  Country: US (occurrence: None)
  Receive Date: 20150608
  Receipt Date: 20150608
  Transmission Date: 20150821
  Serious: Yes (Life-Threatening, Hospitalization, Disabling)
  Sender: FDA-Public Use
  Company Number: None

PATIENT
  Age: 75 Year
  Sex: Female
  Weight: 94.8 kg

DRUGS (2)
  1. DAILY VITAMINS [Concomitant]
  2. IMURAN [Suspect]
     Active Substance: AZATHIOPRINE
     Indication: BLISTER
     Dosage: BY MOUTH
     Dates: start: 20150204, end: 20150326

REACTIONS (1)
  - Asthenia [None]

NARRATIVE: CASE EVENT DATE: 20150326
